FAERS Safety Report 16349857 (Version 5)
Quarter: 2021Q3

REPORT INFORMATION
  Report Type: Spontaneous
  Country: US (occurrence: US)
  Receive Date: 20190523
  Receipt Date: 20210909
  Transmission Date: 20211014
  Serious: No
  Sender: FDA-Public Use
  Company Number: PHEH2019US021476

PATIENT
  Sex: Male

DRUGS (4)
  1. PROMACTA [Suspect]
     Active Substance: ELTROMBOPAG OLAMINE
     Indication: IMMUNE THROMBOCYTOPENIA
     Dosage: 25 MG, QD
     Route: 048
     Dates: start: 20151206
  2. PROMACTA [Suspect]
     Active Substance: ELTROMBOPAG OLAMINE
     Dosage: 12.5 MG
     Route: 048
     Dates: start: 20161130
  3. PROMACTA [Suspect]
     Active Substance: ELTROMBOPAG OLAMINE
     Dosage: 12.5 MG, QD
     Route: 048
     Dates: start: 20161205
  4. PROMACTA [Suspect]
     Active Substance: ELTROMBOPAG OLAMINE
     Dosage: 12.5 MG, QD
     Route: 048
     Dates: start: 2017

REACTIONS (8)
  - Pyrexia [Unknown]
  - Mood swings [Unknown]
  - Dizziness [Unknown]
  - Feeling abnormal [Unknown]
  - Mood swings [Recovered/Resolved]
  - Dizziness [Recovered/Resolved]
  - Fatigue [Unknown]
  - Depressive symptom [Unknown]
